FAERS Safety Report 9247787 (Version 1)
Quarter: 2013Q1

REPORT INFORMATION
  Report Type: Spontaneous
  Country: US (occurrence: None)
  Receive Date: 20130305
  Receipt Date: 20130305
  Transmission Date: 20140127
  Serious: Yes (Other)
  Sender: FDA-Public Use
  Company Number: 163-21880-12062108

PATIENT
  Age: 69 Year
  Sex: Male

DRUGS (2)
  1. REVLIMID [Suspect]
     Indication: PLASMA CELL MYELOMA
     Dosage: , 1 IN 21 CYCLICAL,
     Route: 048
     Dates: start: 20100820
  2. DECADRON (DEXAMETHASONE)(TABLETS) [Concomitant]

REACTIONS (5)
  - Pancytopenia [None]
  - Fatigue [None]
  - Nausea [None]
  - Vomiting [None]
  - Plasma cell myeloma recurrent [None]
